FAERS Safety Report 7373614-7 (Version None)
Quarter: 2011Q1

REPORT INFORMATION
  Report Type: 
  Country: None (occurrence: None)
  Receive Date: 20110325
  Receipt Date: 20101015
  Transmission Date: 20110831
  Serious: Yes (Hospitalization, Other)
  Sender: FDA-Public Use
  Company Number: US-BAYER-201016050NA

PATIENT
  Sex: Female
  Weight: 69.841 kg

DRUGS (7)
  1. YASMIN [Suspect]
  2. SPIRONOLACTONE [Concomitant]
     Dosage: UNK
     Dates: start: 20030101, end: 20050101
  3. YASMIN [Suspect]
     Indication: CONTRACEPTION
  4. TRAZODONE [Concomitant]
     Indication: SLEEP DISORDER THERAPY
     Dosage: UNK
     Dates: start: 20050101
  5. SYNTHROID [Concomitant]
     Indication: HYPOTHYROIDISM
     Dosage: UNK
     Dates: start: 20030101
  6. YASMIN [Suspect]
     Indication: PREMENSTRUAL SYNDROME
     Dosage: UNK
     Route: 048
     Dates: start: 20050701, end: 20060401
  7. LEXAPRO [Concomitant]

REACTIONS (4)
  - DEEP VEIN THROMBOSIS [None]
  - INJURY [None]
  - PULMONARY EMBOLISM [None]
  - MENTAL DISORDER [None]
